FAERS Safety Report 9711027 (Version 2)
Quarter: 2014Q2

REPORT INFORMATION
  Report Type: Spontaneous
  Country: US (occurrence: US)
  Receive Date: 20131126
  Receipt Date: 20140510
  Transmission Date: 20141212
  Serious: No
  Sender: FDA-Public Use
  Company Number: US-BRISTOL-MYERS SQUIBB COMPANY-19034255

PATIENT
  Age: 65 Year
  Sex: Male
  Weight: 90.7 kg

DRUGS (4)
  1. BYDUREON  2MG SUSPENSION [Suspect]
     Indication: TYPE 2 DIABETES MELLITUS
     Dosage: THERAPY ON 17JUN13.EXP:MAR2016
     Route: 058
     Dates: start: 20130603
  2. METFORMIN HCL [Suspect]
  3. GLIMEPIRIDE [Suspect]
  4. GLIPIZIDE [Suspect]

REACTIONS (7)
  - Injection site pruritus [Unknown]
  - Injection site pain [Recovered/Resolved]
  - Injection site haemorrhage [Unknown]
  - Blood glucose decreased [Unknown]
  - Vomiting [Unknown]
  - Nausea [Unknown]
  - Weight increased [Unknown]
